FAERS Safety Report 4753312-6 (Version None)
Quarter: 2005Q3

REPORT INFORMATION
  Report Type: 
  Country: None (occurrence: None)
  Receive Date: 20050826
  Receipt Date: 20050811
  Transmission Date: 20060218
  Serious: Yes (Other)
  Sender: FDA-Public Use
  Company Number: US-AMGEN-US146276

PATIENT
  Sex: Male

DRUGS (2)
  1. ENBREL [Suspect]
     Indication: PSORIASIS
     Dates: start: 20050309, end: 20050707
  2. CYCLOSPORINE [Concomitant]
     Indication: PSORIASIS

REACTIONS (3)
  - CONTUSION [None]
  - EPISTAXIS [None]
  - PLATELET COUNT DECREASED [None]
